FAERS Safety Report 24676140 (Version 1)
Quarter: 2024Q4

REPORT INFORMATION
  Report Type: Spontaneous
  Country: US (occurrence: US)
  Receive Date: 20241128
  Receipt Date: 20241128
  Transmission Date: 20250115
  Serious: No
  Sender: SANOFI AVENTIS
  Company Number: US-SA-2024SA343105

PATIENT
  Age: 31 Year
  Sex: Female

DRUGS (1)
  1. LOVENOX [Suspect]
     Active Substance: ENOXAPARIN SODIUM
     Indication: Cerebral venous thrombosis
     Dosage: 60 MG, BID (2 TIMES EVERY DAY)
     Route: 058

REACTIONS (2)
  - Off label use [Unknown]
  - Maternal exposure during pregnancy [Unknown]
